FAERS Safety Report 12762154 (Version 1)
Quarter: 2016Q3

REPORT INFORMATION
  Report Type: Spontaneous
  Country: PE (occurrence: PE)
  Receive Date: 20160920
  Receipt Date: 20160920
  Transmission Date: 20161109
  Serious: Yes (Other)
  Sender: FDA-Public Use
  Company Number: PE-PFIZER INC-2016429409

PATIENT
  Age: 73 Year
  Sex: Male

DRUGS (2)
  1. XALATAN [Suspect]
     Active Substance: LATANOPROST
     Dosage: 1 GTT (ON THE RIGHT EYE), DAILY
     Route: 047
  2. KRYTANTEK [Concomitant]
     Active Substance: BRIMONIDINE TARTRATE\DORZOLAMIDE HYDROCHLORIDE\TIMOLOL MALEATE
     Dosage: UNK

REACTIONS (4)
  - Blindness unilateral [Unknown]
  - Visual field defect [Unknown]
  - Prostatic disorder [Unknown]
  - Glaucoma [Unknown]
